FAERS Safety Report 4432223-X (Version None)
Quarter: 2004Q3

REPORT INFORMATION
  Report Type: 
  Country: None (occurrence: None)
  Receive Date: 20040825
  Receipt Date: 20040806
  Transmission Date: 20050211
  Serious: Yes (Hospitalization)
  Sender: FDA-Public Use
  Company Number: CA-ROCHE-377208

PATIENT
  Age: 69 Year
  Sex: Male
  Weight: 125 kg

DRUGS (18)
  1. CAPECITABINE [Suspect]
     Indication: COLORECTAL CANCER
     Route: 048
     Dates: start: 20040624, end: 20040704
  2. CAPECITABINE [Suspect]
     Route: 048
     Dates: start: 20040715, end: 20040728
  3. CAPECITABINE [Suspect]
     Route: 048
     Dates: end: 20040804
  4. VITAMIN D [Concomitant]
     Dates: start: 20040224
  5. CALCIUM CARBONATE [Concomitant]
     Dates: start: 20040224, end: 20040706
  6. CALCIUM CARBONATE [Concomitant]
     Dates: start: 20040709
  7. CANDESARTAN [Concomitant]
     Dates: start: 20040224
  8. CLONIDINE HCL [Concomitant]
     Dates: start: 20040224
  9. LASIX [Concomitant]
     Dates: end: 20040706
  10. LASIX [Concomitant]
     Dates: start: 20040709
  11. MULTIVITAMINS W MAGNESIUM [Concomitant]
     Dates: start: 20040224, end: 20040706
  12. MULTIVITAMINS W MAGNESIUM [Concomitant]
     Dates: start: 20040710
  13. SLOW-K [Concomitant]
     Dates: start: 20040224, end: 20040706
  14. SLOW-K [Concomitant]
     Dates: start: 20040710
  15. SERTRALINE HCL [Concomitant]
     Dates: start: 20040224
  16. CEREBREX [Concomitant]
  17. ATIVAN [Concomitant]
     Dosage: PRN.
     Dates: start: 20040224
  18. PREDNISONE [Concomitant]
     Dates: start: 20030615

REACTIONS (10)
  - BRONCHITIS VIRAL [None]
  - COUGH [None]
  - DEHYDRATION [None]
  - DIARRHOEA [None]
  - DYSPNOEA [None]
  - FREQUENT BOWEL MOVEMENTS [None]
  - HYPOTENSION [None]
  - NAUSEA [None]
  - VOMITING [None]
  - WHEEZING [None]
